FAERS Safety Report 24683098 (Version 2)
Quarter: 2024Q4

REPORT INFORMATION
  Report Type: Report from Study
  Country: CA (occurrence: CA)
  Receive Date: 20241201
  Receipt Date: 20241201
  Transmission Date: 20250115
  Serious: Yes (Other)
  Sender: ALEXION PHARMACEUTICALS
  Company Number: CA-AstraZeneca-2024A117125

PATIENT

DRUGS (13)
  1. BENRALIZUMAB [Suspect]
     Active Substance: BENRALIZUMAB
     Indication: Asthma
     Dosage: 30 MILLIGRAM, UNK, FREQUENCY: UNK
  2. BENRALIZUMAB [Suspect]
     Active Substance: BENRALIZUMAB
     Dosage: 30 MILLIGRAM, UNK, FREQUENCY: UNK
  3. BENRALIZUMAB [Suspect]
     Active Substance: BENRALIZUMAB
     Dosage: 30 MILLIGRAM, UNK, FREQUENCY: UNK
  4. BENRALIZUMAB [Suspect]
     Active Substance: BENRALIZUMAB
     Dosage: 30 MILLIGRAM, UNK, FREQUENCY: UNK
  5. VITAMIN D [Concomitant]
     Active Substance: VITAMIN D NOS
  6. NIFEDIPINE [Concomitant]
     Active Substance: NIFEDIPINE
  7. DIOVAN [Concomitant]
     Active Substance: VALSARTAN
  8. PANTOPRAZOLE MAGNESIUM [Concomitant]
     Active Substance: PANTOPRAZOLE MAGNESIUM
  9. PROBIOTICS NOS [Concomitant]
     Active Substance: PROBIOTICS NOS
  10. BREEZE [Concomitant]
     Dosage: 60 MICROGRAM, QD
  11. BREON [Concomitant]
     Dosage: 200 MICROGRAM, UNK, FREQUENCY: UNK
  12. VITAMIN B12 [Concomitant]
     Active Substance: CYANOCOBALAMIN
  13. REACTINE [Concomitant]
     Dosage: 20 MILLIGRAM, UNK, FREQUENCY: UNK

REACTIONS (5)
  - Breast cancer [Unknown]
  - White blood cell count decreased [Unknown]
  - Pneumothorax [Unknown]
  - Asthma [Unknown]
  - Dyspnoea [Unknown]
